FAERS Safety Report 8386505-X (Version None)
Quarter: 2012Q2

REPORT INFORMATION
  Report Type: 
  Country: None (occurrence: None)
  Receive Date: 20120525
  Receipt Date: 20120515
  Transmission Date: 20120825
  Serious: Yes (Hospitalization)
  Sender: FDA-Public Use
  Company Number: JP-EISAI INC-E7389-01915-CLI-JP

PATIENT
  Sex: Female
  Weight: 40 kg

DRUGS (29)
  1. AZUNOL [Concomitant]
     Indication: PROPHYLAXIS
     Dosage: UNKNOWN
     Route: 065
  2. INKALBON [Concomitant]
     Indication: CONSTIPATION
     Dosage: UNKNOWN
  3. LANSOPRAZOLE [Concomitant]
     Indication: PROPHYLAXIS
     Dosage: UNKNOWN
     Route: 048
  4. HYSDRON-H [Concomitant]
     Dosage: UNKNOWN
     Route: 048
     Dates: start: 20100603
  5. HYSDRON-H [Concomitant]
  6. GLYCEOL [Concomitant]
     Dosage: UNKNOWN
     Route: 065
  7. FLOKISYL [Concomitant]
     Indication: PROPHYLAXIS
     Dosage: UNKNOWN
     Route: 048
  8. SUPELZON [Concomitant]
     Indication: PROPHYLAXIS
     Dosage: UNKNOWN
     Route: 041
  9. HALAVEN [Suspect]
     Indication: METASTASES TO LUNG
  10. HALAVEN [Suspect]
     Indication: METASTASES TO LIVER
  11. ZOMETA [Concomitant]
     Indication: METASTASES TO BONE
     Dosage: UNKNOWN
     Route: 041
  12. ALVIATIN [Concomitant]
     Indication: PROPHYLAXIS
     Dosage: UNKNOWN
     Route: 048
  13. PRECOAT [Concomitant]
     Dosage: UNKNOWN
     Route: 048
  14. GRANISETRON [Concomitant]
     Indication: PROPHYLAXIS
     Dosage: UNKNOWN
     Route: 041
  15. TPN ELECTROLYTES IN PLASTIC CONTAINER [Concomitant]
     Indication: MALNUTRITION
  16. HALAVEN [Suspect]
  17. PACIF [Concomitant]
     Dosage: UNKNOWN
     Route: 048
  18. NEOPHAGEN [Concomitant]
     Indication: PROPHYLAXIS
     Dosage: UNKNOWN
     Route: 041
  19. HYSDRON-H [Concomitant]
     Indication: BREAST CANCER RECURRENT
  20. FUROSEMIDE [Concomitant]
     Dosage: UNKNOWN
     Route: 041
  21. DECADRON [Concomitant]
     Indication: PROPHYLAXIS
     Dosage: UNKNOWN
     Route: 041
  22. FAMOTIDINE [Concomitant]
     Indication: PROPHYLAXIS
     Dosage: UNKNOWN
     Route: 041
  23. CELESTAMINE TAB [Concomitant]
     Indication: PROPHYLAXIS
     Dosage: UNKNOWN
     Route: 048
  24. LOXOMARIN [Concomitant]
     Dosage: UNKNOWN
     Route: 048
  25. HALAVEN [Suspect]
     Indication: BREAST CANCER RECURRENT
     Route: 041
     Dates: start: 20110804, end: 20111220
  26. HALAVEN [Suspect]
     Indication: METASTASES TO BONE
  27. ELIETEN [Concomitant]
     Indication: PROPHYLAXIS
     Dosage: UNKNOWN
     Route: 048
  28. CODEINE PHOSPHATE HYDRATE [Concomitant]
     Dosage: UNKNOWN
     Route: 048
  29. MAGNESIUM SULFATE [Concomitant]
     Indication: CONSTIPATION
     Dosage: UNKNOWN
     Route: 048

REACTIONS (4)
  - LYMPHOPENIA [None]
  - NEUTROPENIA [None]
  - LEUKOPENIA [None]
  - LUNG INFECTION [None]
